FAERS Safety Report 8493737-9 (Version None)
Quarter: 2012Q3

REPORT INFORMATION
  Report Type: 
  Country: None (occurrence: None)
  Receive Date: 20120706
  Receipt Date: 20120702
  Transmission Date: 20120928
  Serious: Yes (Hospitalization, Other)
  Sender: FDA-Public Use
  Company Number: CHPA2012US012051

PATIENT
  Sex: Female
  Weight: 108.5 kg

DRUGS (9)
  1. AMLODIPINE [Concomitant]
     Dosage: 10 MG, QD
  2. METFORMIN HCL [Concomitant]
     Indication: TYPE 2 DIABETES MELLITUS
     Dosage: 500 MG, TID
  3. ALLEGRA [Concomitant]
     Dosage: 180 MG, UNK
  4. NORVASC [Concomitant]
     Dosage: 10 MG, QD
  5. LISINOPRIL [Concomitant]
     Indication: HYPERTENSION
     Dosage: 10 MG, QD
  6. HYDROCHLOROTHIAZIDE [Concomitant]
     Dosage: 25 MG, QD
  7. SIMVASTATIN [Concomitant]
     Dosage: 20 MG, QHS
     Route: 048
  8. EXCEDRIN EXTRA STRENGTH TABLETS [Suspect]
     Indication: HEADACHE
     Dosage: UNK, UNK
     Dates: start: 20120217, end: 20120217
  9. METOPROLOL TARTRATE [Concomitant]
     Dosage: 25 MG, Q12H
     Route: 048

REACTIONS (14)
  - HYPERHIDROSIS [None]
  - CONCOMITANT DISEASE AGGRAVATED [None]
  - HYPERTENSION [None]
  - CHEST PAIN [None]
  - CHEST DISCOMFORT [None]
  - DYSPNOEA [None]
  - BLOOD GLUCOSE INCREASED [None]
  - FLUSHING [None]
  - ANGINA UNSTABLE [None]
  - FEELING HOT [None]
  - DIZZINESS [None]
  - NAUSEA [None]
  - ELECTROCARDIOGRAM T WAVE ABNORMAL [None]
  - ACUTE CORONARY SYNDROME [None]
